FAERS Safety Report 20589564 (Version 2)
Quarter: 2022Q1

REPORT INFORMATION
  Report Type: Report from Study
  Country: KR (occurrence: KR)
  Receive Date: 20220314
  Receipt Date: 20220323
  Transmission Date: 20220423
  Serious: Yes (Hospitalization)
  Sender: FDA-Public Use
  Company Number: KR-SA-SAC20220301000917

PATIENT
  Age: 65 Year
  Sex: Male
  Weight: 55 kg

DRUGS (9)
  1. AFLIBERCEPT [Suspect]
     Active Substance: AFLIBERCEPT
     Indication: Rectal cancer
     Dosage: 4 MG/KG, Q3W
     Route: 042
     Dates: start: 20211123
  2. AFLIBERCEPT [Suspect]
     Active Substance: AFLIBERCEPT
     Indication: Colorectal cancer
  3. IRINOTECAN [Suspect]
     Active Substance: IRINOTECAN
     Indication: Rectal cancer
     Dosage: 150 MG/M2, Q3W
     Route: 042
     Dates: start: 20211123
  4. LEUCOVORIN [Suspect]
     Active Substance: LEUCOVORIN
     Indication: Rectal cancer
     Dosage: 400 MG/M2, Q3W
     Route: 042
     Dates: start: 20211123
  5. ACETAMINOPHEN [Concomitant]
     Active Substance: ACETAMINOPHEN
     Indication: Proctalgia
     Dosage: 1 DF, PRN
     Route: 048
     Dates: start: 20210426
  6. NORVASC [Concomitant]
     Active Substance: AMLODIPINE BESYLATE
     Indication: Hypertension
     Dosage: 5 MG, QD
     Route: 048
     Dates: start: 20210510
  7. MACPERAN [METOCLOPRAMIDE] [Concomitant]
     Indication: Prophylaxis of nausea and vomiting
     Dosage: 5 MG, PRN
     Route: 048
     Dates: start: 20210324
  8. CELEBREX [Concomitant]
     Active Substance: CELECOXIB
     Indication: Arthritis
     Dosage: 200 MG, BID
     Route: 048
     Dates: start: 20210621
  9. LYRICA [Concomitant]
     Active Substance: PREGABALIN
     Indication: Arthritis
     Dosage: 75 MG, BID
     Route: 048
     Dates: start: 20220207

REACTIONS (2)
  - Pelvic fracture [Recovered/Resolved]
  - Fall [Not Recovered/Not Resolved]

NARRATIVE: CASE EVENT DATE: 20220226
